FAERS Safety Report 17023891 (Version 1)
Quarter: 2019Q4

REPORT INFORMATION
  Report Type: Report from Study
  Country: US (occurrence: US)
  Receive Date: 20191113
  Receipt Date: 20191113
  Transmission Date: 20200122
  Serious: Yes (Death)
  Sender: FDA-Public Use
  Company Number: US-ROCHE-2472660

PATIENT
  Sex: Female

DRUGS (1)
  1. TECENTRIQ [Suspect]
     Active Substance: ATEZOLIZUMAB
     Indication: BREAST CANCER FEMALE
     Dosage: INFUSION 840MG INTRAVENOUSLY ON DAY(S) 1 AND DAY(S) 15 FOR EVERY 21 DAYS
     Route: 042

REACTIONS (1)
  - Death [Fatal]
